FAERS Safety Report 7573246-1 (Version None)
Quarter: 2011Q2

REPORT INFORMATION
  Report Type: 
  Country: None (occurrence: None)
  Receive Date: 20110627
  Receipt Date: 20110614
  Transmission Date: 20111010
  Serious: Yes (Other)
  Sender: FDA-Public Use
  Company Number: PHHY2011CA13618

PATIENT
  Sex: Male

DRUGS (2)
  1. EXJADE [Suspect]
     Indication: IRON OVERLOAD
  2. EXJADE [Suspect]
     Indication: REFRACTORY CYTOPENIA WITH MULTILINEAGE DYSPLASIA
     Dosage: 1750 MG
     Route: 048
     Dates: start: 20101118, end: 20110501

REACTIONS (4)
  - RECTAL HAEMORRHAGE [None]
  - DIARRHOEA [None]
  - CONTUSION [None]
  - ACUTE MYELOID LEUKAEMIA [None]
